FAERS Safety Report 24206911 (Version 7)
Quarter: 2024Q4

REPORT INFORMATION
  Report Type: Spontaneous
  Country: US (occurrence: US)
  Receive Date: 20240813
  Receipt Date: 20241216
  Transmission Date: 20250115
  Serious: Yes (Other)
  Sender: INCYTE
  Company Number: US-INCYTE CORPORATION-2024IN008025

PATIENT

DRUGS (5)
  1. JAKAFI [Suspect]
     Active Substance: RUXOLITINIB
     Indication: Lichen planus
     Dosage: 5 MILLIGRAM, BID
     Route: 048
     Dates: start: 20240724, end: 20240803
  2. JAKAFI [Suspect]
     Active Substance: RUXOLITINIB
     Indication: Myeloproliferative neoplasm
     Dosage: 10 MILLIGRAM, BID
     Route: 048
     Dates: start: 20240830
  3. JAKAFI [Suspect]
     Active Substance: RUXOLITINIB
     Indication: Neurodermatitis
     Dosage: 10 MILLIGRAM, BID
     Route: 048
     Dates: start: 20240724, end: 20240930
  4. JAKAFI [Suspect]
     Active Substance: RUXOLITINIB
     Dosage: 5 MILLIGRAM, BID
     Route: 048
     Dates: start: 20240724, end: 20240930
  5. JAKAFI [Suspect]
     Active Substance: RUXOLITINIB
     Dosage: 10 MILLIGRAM, BID
     Route: 048
     Dates: start: 20241128

REACTIONS (5)
  - Oxygen saturation decreased [Unknown]
  - Ill-defined disorder [Unknown]
  - Skin disorder [Unknown]
  - Product availability issue [Unknown]
  - Off label use [Unknown]

NARRATIVE: CASE EVENT DATE: 20240724
